FAERS Safety Report 5288066-0 (Version None)
Quarter: 2007Q2

REPORT INFORMATION
  Report Type: 
  Country: None (occurrence: None)
  Receive Date: 20070405
  Receipt Date: 20021120
  Transmission Date: 20071010
  Serious: Yes (Other)
  Sender: FDA-Public Use
  Company Number: DE-BRISTOL-MYERS SQUIBB COMPANY-13737341

PATIENT

DRUGS (3)
  1. SUSTIVA [Suspect]
     Indication: HIV INFECTION
  2. VIDEX [Suspect]
     Indication: HIV INFECTION
  3. ZERIT [Suspect]
     Indication: HIV INFECTION

REACTIONS (1)
  - DIABETES MELLITUS INSULIN-DEPENDENT [None]
